FAERS Safety Report 11540883 (Version 11)
Quarter: 2019Q4

REPORT INFORMATION
  Report Type: Report from Study
  Country: US (occurrence: US)
  Receive Date: 20150923
  Receipt Date: 20191126
  Transmission Date: 20200122
  Serious: Yes (Other)
  Sender: FDA-Public Use
  Company Number: US-SA-2015SA078750

PATIENT
  Age: 43 Year
  Sex: Male

DRUGS (3)
  1. VALIUM [Concomitant]
     Active Substance: DIAZEPAM
     Indication: AUTONOMIC DYSREFLEXIA
     Dosage: UNK UNK, UNK
     Route: 065
  2. PHENOBARBITAL. [Concomitant]
     Active Substance: PHENOBARBITAL
     Indication: AUTONOMIC DYSREFLEXIA
     Dosage: UNK UNK, UNK
     Route: 065
  3. ALEMTUZUMAB [Suspect]
     Active Substance: ALEMTUZUMAB
     Indication: MULTIPLE SCLEROSIS
     Dosage: 12 MG,QD
     Route: 041
     Dates: start: 20150309, end: 20150313

REACTIONS (44)
  - Rotator cuff syndrome [Unknown]
  - Abdominal pain upper [Unknown]
  - Multiple sclerosis [Unknown]
  - Influenza [Recovered/Resolved]
  - Laboratory test abnormal [Unknown]
  - Periarthritis [Unknown]
  - Fall [Unknown]
  - Feeling abnormal [Recovered/Resolved]
  - Contusion [Not Recovered/Not Resolved]
  - Heart rate increased [Not Recovered/Not Resolved]
  - Chest pain [Unknown]
  - Feeling cold [Recovered/Resolved]
  - Hyperhidrosis [Unknown]
  - Eye swelling [Unknown]
  - Eye movement disorder [Not Recovered/Not Resolved]
  - Dermal cyst [Unknown]
  - Movement disorder [Not Recovered/Not Resolved]
  - Heart rate increased [Unknown]
  - Skin laceration [Not Recovered/Not Resolved]
  - Rib fracture [Recovered/Resolved]
  - Diabetic complication [Not Recovered/Not Resolved]
  - Dyspepsia [Unknown]
  - Chills [Not Recovered/Not Resolved]
  - Ear pain [Unknown]
  - Nerve injury [Unknown]
  - Headache [Unknown]
  - Rash [Unknown]
  - Dizziness [Not Recovered/Not Resolved]
  - Balance disorder [Not Recovered/Not Resolved]
  - Blood urine present [Unknown]
  - Fatigue [Unknown]
  - Thyroid disorder [Unknown]
  - Arthralgia [Unknown]
  - Haemorrhage [Unknown]
  - Tremor [Not Recovered/Not Resolved]
  - Nausea [Unknown]
  - Pyrexia [Unknown]
  - Diarrhoea [Unknown]
  - Bone pain [Recovered/Resolved]
  - Abnormal loss of weight [Unknown]
  - Respiratory rate increased [Not Recovered/Not Resolved]
  - Bladder disorder [Not Recovered/Not Resolved]
  - Hyperhidrosis [Not Recovered/Not Resolved]
  - Dyspnoea [Not Recovered/Not Resolved]

NARRATIVE: CASE EVENT DATE: 2015
